FAERS Safety Report 25773643 (Version 1)
Quarter: 2025Q3

REPORT INFORMATION
  Report Type: Spontaneous
  Country: JP (occurrence: JP)
  Receive Date: 20250908
  Receipt Date: 20250908
  Transmission Date: 20251020
  Serious: Yes (Death)
  Sender: OTSUKA
  Company Number: JP-MMM-Otsuka-WV2RUQKN

PATIENT
  Age: 80 Year

DRUGS (1)
  1. REXULTI [Suspect]
     Active Substance: BREXPIPRAZOLE
     Indication: Schizophrenia
     Route: 065

REACTIONS (1)
  - Hepatic encephalopathy [Fatal]
